FAERS Safety Report 4709894-3 (Version None)
Quarter: 2005Q3

REPORT INFORMATION
  Report Type: 
  Country: None (occurrence: None)
  Receive Date: 20050708
  Receipt Date: 20050627
  Transmission Date: 20060218
  Serious: Yes (Other)
  Sender: FDA-Public Use
  Company Number: FR-BRISTOL-MYERS SQUIBB COMPANY-13017314

PATIENT
  Age: 76 Year
  Sex: Female
  Weight: 45 kg

DRUGS (1)
  1. OXACILLIN [Suspect]
     Indication: WOUND INFECTION STAPHYLOCOCCAL
     Dosage: DOSAGE FORM=DOSES
     Dates: start: 20050406, end: 20050510

REACTIONS (2)
  - HEPATITIS CHOLESTATIC [None]
  - JAUNDICE [None]
